FAERS Safety Report 7849263-0 (Version None)
Quarter: 2011Q4

REPORT INFORMATION
  Report Type: 
  Country: None (occurrence: None)
  Receive Date: 20111021
  Receipt Date: 20111007
  Transmission Date: 20120403
  Serious: Yes (Other)
  Sender: FDA-Public Use
  Company Number: TPA2011A06564

PATIENT
  Age: 56 Year

DRUGS (1)
  1. ACTOPLUS MET [Suspect]
     Indication: TYPE 2 DIABETES MELLITUS
     Dosage: 15/850, 2 IN 1 D, PER ORAL
     Route: 048
     Dates: start: 20100101

REACTIONS (1)
  - BLADDER CANCER [None]
